FAERS Safety Report 18441987 (Version 1)
Quarter: 2020Q4

REPORT INFORMATION
  Report Type: Spontaneous
  Country: US (occurrence: US)
  Receive Date: 20201029
  Receipt Date: 20201029
  Transmission Date: 20210114
  Serious: Yes (Other)
  Sender: FDA-Public Use
  Company Number: NVSC2020US286848

PATIENT
  Age: 85 Year
  Sex: Female

DRUGS (1)
  1. RECLAST [Suspect]
     Active Substance: ZOLEDRONIC ACID
     Indication: PRODUCT USED FOR UNKNOWN INDICATION
     Dosage: UNK (INTRAVENOUS- INTO BLOODSTREAM VIA VEIN)
     Route: 042
     Dates: start: 20200603

REACTIONS (10)
  - Dyspnoea [Unknown]
  - Ocular hyperaemia [Unknown]
  - Gingival swelling [Unknown]
  - Choking [Unknown]
  - Urinary tract disorder [Unknown]
  - Oropharyngeal discomfort [Unknown]
  - Functional gastrointestinal disorder [Unknown]
  - Rash [Unknown]
  - Mouth ulceration [Unknown]
  - Loose tooth [Unknown]

NARRATIVE: CASE EVENT DATE: 20200604
